FAERS Safety Report 4848423-0 (Version None)
Quarter: 2005Q4

REPORT INFORMATION
  Report Type: 
  Country: None (occurrence: None)
  Receive Date: 20051208
  Receipt Date: 20051206
  Transmission Date: 20060501
  Serious: Yes (Death, Hospitalization)
  Sender: FDA-Public Use
  Company Number: US-GLAXOSMITHKLINE-A0584893A

PATIENT
  Age: 28 Year
  Sex: Female
  Weight: 52.7 kg

DRUGS (8)
  1. TOPOTECAN [Suspect]
     Dosage: .75MGM2 CYCLIC
     Route: 042
     Dates: start: 19990513, end: 19990515
  2. CISPLATIN [Suspect]
     Dosage: 50MGM2 CYCLIC
     Route: 042
     Dates: start: 19990513, end: 19990513
  3. PAIN MEDICATION [Concomitant]
  4. ANTIEMETIC [Concomitant]
  5. ANTIBIOTICS [Concomitant]
  6. ANTIPYRETIC [Concomitant]
  7. NEUPOGEN [Concomitant]
     Route: 058
     Dates: start: 19990526, end: 19990531
  8. NEUMEGA [Concomitant]
     Route: 058

REACTIONS (6)
  - ABDOMINAL DISTENSION [None]
  - MALIGNANT NEOPLASM PROGRESSION [None]
  - METASTASES TO ABDOMINAL CAVITY [None]
  - METASTATIC NEOPLASM [None]
  - PERFORMANCE STATUS DECREASED [None]
  - PYREXIA [None]
